FAERS Safety Report 24096797 (Version 1)
Quarter: 2024Q3

REPORT INFORMATION
  Report Type: Spontaneous
  Country: US (occurrence: None)
  Receive Date: 20240715
  Receipt Date: 20240715
  Transmission Date: 20241017
  Serious: Yes (Death, Hospitalization, Other)
  Sender: Public
  Company Number: None

PATIENT
  Age: 78 Year
  Sex: Male
  Weight: 69.75 kg

DRUGS (2)
  1. IMFINZI [Suspect]
     Active Substance: DURVALUMAB
     Indication: Hepatocellular carcinoma
     Dates: start: 20240507, end: 20240507
  2. IMJUDO [Suspect]
     Active Substance: TREMELIMUMAB\TREMELIMUMAB-ACTL

REACTIONS (5)
  - Immunotoxicity [None]
  - Autoimmune hepatitis [None]
  - Toxicity to various agents [None]
  - Drug monitoring procedure not performed [None]
  - Iatrogenic injury [None]

NARRATIVE: CASE EVENT DATE: 20240507
